FAERS Safety Report 16436265 (Version 2)
Quarter: 2019Q3

REPORT INFORMATION
  Report Type: Spontaneous
  Country: US (occurrence: US)
  Receive Date: 20190614
  Receipt Date: 20190827
  Transmission Date: 20191004
  Serious: No
  Sender: FDA-Public Use
  Company Number: US-JNJFOC-20190616006

PATIENT
  Sex: Female
  Weight: 55.84 kg

DRUGS (1)
  1. MINOXIDIL. [Suspect]
     Active Substance: MINOXIDIL
     Indication: ALOPECIA
     Dosage: UNKNOWN AMOUNT
     Route: 065
     Dates: start: 20190321

REACTIONS (1)
  - Alopecia [Recovering/Resolving]
